FAERS Safety Report 23383935 (Version 1)
Quarter: 2024Q1

REPORT INFORMATION
  Report Type: Spontaneous
  Country: IT (occurrence: IT)
  Receive Date: 20240109
  Receipt Date: 20240109
  Transmission Date: 20240409
  Serious: Yes (Life-Threatening, Hospitalization)
  Sender: FDA-Public Use
  Company Number: IT-TEVA-VS-3134268

PATIENT
  Age: 21 Year

DRUGS (2)
  1. TESTOSTERONE [Suspect]
     Active Substance: TESTOSTERONE
     Indication: Gender reassignment therapy
     Route: 065
  2. QUINIDINE [Suspect]
     Active Substance: QUINIDINE
     Indication: Brugada syndrome
     Route: 065

REACTIONS (3)
  - Unmasking of previously unidentified disease [Recovering/Resolving]
  - Drug intolerance [Unknown]
  - Brugada syndrome [Recovering/Resolving]
